FAERS Safety Report 5103317-0 (Version None)
Quarter: 2006Q3

REPORT INFORMATION
  Report Type: 
  Country: None (occurrence: None)
  Receive Date: 20060913
  Receipt Date: 20050712
  Transmission Date: 20061208
  Serious: Yes (Other)
  Sender: FDA-Public Use
  Company Number: US-BAYER-200511388BWH

PATIENT
  Age: 62 Year
  Sex: Male
  Weight: 91 kg

DRUGS (1)
  1. LEVITRA [Suspect]
     Indication: ERECTILE DYSFUNCTION
     Dosage: AS USED: 10 MG  UNIT DOSE: 10 MG
     Route: 048
     Dates: start: 20040101

REACTIONS (2)
  - MEMORY IMPAIRMENT [None]
  - VISUAL DISTURBANCE [None]
